FAERS Safety Report 14024132 (Version 2)
Quarter: 2017Q4

REPORT INFORMATION
  Report Type: Spontaneous
  Country: US (occurrence: US)
  Receive Date: 20170929
  Receipt Date: 20171024
  Transmission Date: 20180321
  Serious: Yes (Other)
  Sender: FDA-Public Use
  Company Number: US-JNJFOC-20170927870

PATIENT
  Sex: Male

DRUGS (1)
  1. INVEGA SUSTENNA [Suspect]
     Active Substance: PALIPERIDONE PALMITATE
     Indication: SCHIZOAFFECTIVE DISORDER
     Route: 030
     Dates: start: 201703

REACTIONS (4)
  - Hyperthyroidism [Unknown]
  - Erectile dysfunction [Unknown]
  - Blood prolactin increased [Unknown]
  - Breast discharge [Unknown]

NARRATIVE: CASE EVENT DATE: 201708
